FAERS Safety Report 8399092-7 (Version None)
Quarter: 2012Q2

REPORT INFORMATION
  Report Type: 
  Country: None (occurrence: None)
  Receive Date: 20120531
  Receipt Date: 20120523
  Transmission Date: 20120825
  Serious: Yes (Other)
  Sender: FDA-Public Use
  Company Number: AT-TEVA-339881ISR

PATIENT
  Age: 83 Year
  Sex: Male

DRUGS (18)
  1. CYMBALTA [Suspect]
     Dates: start: 20111130, end: 20111205
  2. NACL KAPAELN [Concomitant]
     Dosage: 2/2/2
     Dates: start: 20111209
  3. NACL KAPAELN [Concomitant]
     Dosage: 1/0/2
     Dates: start: 20111201, end: 20111209
  4. PANTOPRAZOLE SODIUM [Suspect]
  5. CIPROFLOXACIN [Concomitant]
     Dates: start: 20111126, end: 20111203
  6. LISINOPRIL AND HYDROCHLOROTHIAZIDE [Suspect]
     Dates: end: 20111205
  7. SERTRALINE HYDROCHLORIDE [Concomitant]
     Dosage: 50 MILLIGRAM;
     Dates: start: 20111212
  8. AMLODIPINE [Concomitant]
  9. TAMSULOSIN HCL [Concomitant]
     Dates: start: 20110101
  10. DOXAZOSIN MESYLATE [Concomitant]
  11. ALPRAZOLAM [Concomitant]
     Dates: start: 20111215
  12. MOLAXOLE (SODIUM BICARBONATE, POTASSIUM CHLORIDE, SODIUM CHLORIDE, MAC [Concomitant]
  13. LISINOPRIL [Concomitant]
     Dates: start: 20111205
  14. ASPIRIN [Concomitant]
  15. CYMBALTA [Suspect]
     Dates: start: 20111205, end: 20111205
  16. DOMINAL FORTE [Concomitant]
     Dates: start: 20111204
  17. RISPERDAL [Concomitant]
     Dates: start: 20111215
  18. SIMVASTATIN [Concomitant]

REACTIONS (2)
  - HYPOKALAEMIA [None]
  - HYPONATRAEMIA [None]
